FAERS Safety Report 8272408-8 (Version None)
Quarter: 2012Q2

REPORT INFORMATION
  Report Type: 
  Country: None (occurrence: None)
  Receive Date: 20120410
  Receipt Date: 20120329
  Transmission Date: 20120825
  Serious: Yes (Hospitalization)
  Sender: FDA-Public Use
  Company Number: PL-B.I. PHARMACEUTICALS,INC./RIDGEFIELD-2012-EU-01837EU

PATIENT
  Sex: Female
  Weight: 93 kg

DRUGS (7)
  1. SORBIFER [Concomitant]
     Indication: ANAEMIA
     Dosage: 2 ANZ
     Route: 048
     Dates: start: 20120317
  2. INSULIN INSULATARD NPH NORDISK [Concomitant]
     Indication: DIABETES MELLITUS
     Dosage: 16 U
     Route: 058
  3. DABIGATRAN [Suspect]
     Indication: HEART VALVE REPLACEMENT
     Dosage: 600 MG
     Route: 048
     Dates: start: 20120316
  4. BISOPROLOL FUMARATE [Concomitant]
     Indication: HYPERTENSION
     Dosage: 3.75 MG
     Route: 048
  5. FUROSEMIDUM [Concomitant]
     Indication: HYPERTENSION
     Dosage: 40 NR
     Route: 048
     Dates: start: 20120316, end: 20120328
  6. INSULIN NOVO RAPID [Concomitant]
     Indication: DIABETES MELLITUS
     Dosage: 40 U
     Route: 058
  7. KALIPOZ [Concomitant]
     Indication: HYPOKALAEMIA
     Dosage: 2 ANZ
     Route: 048
     Dates: start: 20120316, end: 20120328

REACTIONS (1)
  - WOUND INFECTION [None]
